FAERS Safety Report 8800478 (Version 1)
Quarter: 2012Q4

REPORT INFORMATION
  Report Type: Report from Study
  Country: DE (occurrence: TW)
  Receive Date: 20120921
  Receipt Date: 20120921
  Transmission Date: 20130627
  Serious: Yes (Hospitalization, Other)
  Sender: FDA-Public Use
  Company Number: TW-BRISTOL-MYERS SQUIBB COMPANY-16722068

PATIENT
  Age: 58 Year
  Sex: Male
  Weight: 58 kg

DRUGS (13)
  1. CETUXIMAB [Suspect]
     Indication: LIP AND/OR ORAL CAVITY CANCER
     Dosage: Recent dose:408mg,20Jun12
     Route: 042
     Dates: start: 20120613
  2. CISPLATIN [Suspect]
     Indication: LIP AND/OR ORAL CAVITY CANCER
     Dates: start: 20120613
  3. 5-FLUOROURACIL [Suspect]
     Indication: LIP AND/OR ORAL CAVITY CANCER
     Dosage: rece:17Jun2012.
     Route: 042
     Dates: start: 20120613
  4. HEPARIN [Concomitant]
     Route: 042
     Dates: start: 20120613, end: 20120614
  5. SENOKOT [Concomitant]
     Dosage: Tabs,2 tabs by mouth at bed time.
     Route: 048
     Dates: start: 20120607, end: 20120618
  6. MAGNESIUM OXIDE [Concomitant]
     Dosage: 1000 mg,2 tabs QID
     Route: 048
     Dates: start: 20120607, end: 20120618
  7. METHADONE [Concomitant]
     Dosage: 5mg,1 in 1D,
13Jun12-14Jun12(1 days)
13Jun12-18Jun12(5 days).
     Route: 042
     Dates: start: 20120613, end: 20120618
  8. CATAFLAM [Concomitant]
     Dosage: tabs
     Route: 048
     Dates: start: 20120605, end: 20120618
  9. AUGMENTIN [Concomitant]
     Dosage: Dose:(1125 mg)373mg,3in 1D,18Jun12-20Jun12;2 days; 1200mg every 8hrs.
     Route: 042
     Dates: start: 20120605, end: 20120618
  10. PRIMPERAN [Concomitant]
     Route: 042
     Dates: start: 20120618, end: 20120620
  11. CHLORPHENAMINE MALEATE [Concomitant]
     Route: 042
     Dates: start: 20120613, end: 20120614
  12. MORPHINE [Concomitant]
     Dosage: 5Jun-18Jun12:40mg;13D,PO,5Jn-18Jn12:48mg(8mg,Q4,PRN);IV:13D,18Jun-20Jun12:40mg(10 mg,4 in 1D,PO,2D.
     Route: 048
     Dates: start: 20120605, end: 20120620
  13. PARACETAMOL [Concomitant]
     Dosage: tabs
     Route: 048
     Dates: start: 20120608, end: 20120618

REACTIONS (3)
  - Leukopenia [Recovered/Resolved]
  - Neutropenia [Recovered/Resolved]
  - Abdominal pain [Recovered/Resolved]
